FAERS Safety Report 24608147 (Version 1)
Quarter: 2024Q4

REPORT INFORMATION
  Report Type: Spontaneous
  Country: US (occurrence: US)
  Receive Date: 20241112
  Receipt Date: 20241112
  Transmission Date: 20250114
  Serious: Yes (Life-Threatening, Hospitalization, Other)
  Sender: AUROBINDO
  Company Number: US-MLMSERVICE-20241022-PI231276-00271-1

PATIENT
  Age: 68 Year
  Sex: Male

DRUGS (2)
  1. PREDNISONE [Suspect]
     Active Substance: PREDNISONE
     Indication: Haemolytic anaemia
     Dosage: 1 MILLIGRAM/KILOGRAM, ONCE A DAY (1 MG/KG/DAY) WAS STARTED, AND WAS GIVEN AS A TAPER THROUGHOUT THE
     Route: 065
  2. ACALABRUTINIB [Suspect]
     Active Substance: ACALABRUTINIB
     Indication: Chronic lymphocytic leukaemia
     Dosage: 100 MILLIGRAM
     Route: 065

REACTIONS (11)
  - Encephalopathy [Unknown]
  - Respiratory failure [Unknown]
  - Escherichia pyelonephritis [Unknown]
  - Escherichia bacteraemia [Unknown]
  - Cryptococcosis [Unknown]
  - Disseminated cryptococcosis [Unknown]
  - Cytomegalovirus viraemia [Unknown]
  - Pneumonia cytomegaloviral [Unknown]
  - Herpes simplex pneumonia [Unknown]
  - Stenotrophomonas maltophilia pneumonia [Unknown]
  - Bronchopulmonary aspergillosis [Unknown]
